FAERS Safety Report 8830784 (Version 2)
Quarter: 2012Q4

REPORT INFORMATION
  Report Type: 
  Country: US (occurrence: US)
  Receive Date: 20121009
  Receipt Date: 20121218
  Transmission Date: 20130627
  Serious: No
  Sender: FDA-Public Use
  Company Number: US-009507513-1210USA003378

PATIENT
  Sex: Male

DRUGS (4)
  1. MIRALAX [Suspect]
     Indication: CONSTIPATION
     Dosage: UNK, Unknown
     Route: 048
     Dates: start: 20121002
  2. MIRALAX [Suspect]
     Indication: MEDICAL OBSERVATION
  3. COLACE [Suspect]
     Indication: CONSTIPATION
     Dosage: UNK, Unknown
     Dates: start: 20121002
  4. COLACE [Suspect]
     Indication: MEDICAL OBSERVATION

REACTIONS (4)
  - Abnormal faeces [Unknown]
  - Drug ineffective [Unknown]
  - Bowel movement irregularity [Unknown]
  - Diarrhoea [Unknown]
